FAERS Safety Report 25082435 (Version 1)
Quarter: 2025Q1

REPORT INFORMATION
  Report Type: Spontaneous
  Country: DE (occurrence: DE)
  Receive Date: 20250317
  Receipt Date: 20250317
  Transmission Date: 20250408
  Serious: Yes (Other)
  Sender: UCB
  Company Number: DE-UCBSA-2025015000

PATIENT
  Age: 51 Year
  Sex: Female

DRUGS (1)
  1. BIMZELX [Suspect]
     Active Substance: BIMEKIZUMAB-BKZX
     Indication: Psoriasis
     Dates: start: 202311

REACTIONS (2)
  - Malignant melanoma [Unknown]
  - Skin neoplasm excision [Unknown]
